FAERS Safety Report 6827132-2 (Version None)
Quarter: 2010Q3

REPORT INFORMATION
  Report Type: 
  Country: None (occurrence: None)
  Receive Date: 20100709
  Receipt Date: 20100706
  Transmission Date: 20110219
  Serious: Yes (Hospitalization)
  Sender: FDA-Public Use
  Company Number: FR-BRISTOL-MYERS SQUIBB COMPANY-15137912

PATIENT
  Age: 37 Year
  Sex: Male

DRUGS (3)
  1. ABILIFY [Suspect]
     Indication: BIPOLAR DISORDER
     Dosage: DOSE REDUCED TO 5MG/DAY ON 25MAY2010
     Route: 048
     Dates: start: 20081014
  2. ABILIFY [Suspect]
     Indication: PSYCHOTIC DISORDER
     Dosage: DOSE REDUCED TO 5MG/DAY ON 25MAY2010
     Route: 048
     Dates: start: 20081014
  3. ANAFRANIL [Concomitant]
     Dosage: 37.5MG/DAY ORALLY
     Route: 048
     Dates: start: 20060801

REACTIONS (2)
  - ABNORMAL BEHAVIOUR [None]
  - RHABDOMYOLYSIS [None]
